FAERS Safety Report 10176459 (Version 2)
Quarter: 2014Q2

REPORT INFORMATION
  Report Type: Spontaneous
  Country: US (occurrence: US)
  Receive Date: 20140516
  Receipt Date: 20140618
  Transmission Date: 20141212
  Serious: Yes (Other)
  Sender: FDA-Public Use
  Company Number: US-PFIZER INC-2014134521

PATIENT
  Age: 50 Year
  Sex: Female
  Weight: 72.11 kg

DRUGS (2)
  1. CHANTIX [Suspect]
     Indication: SMOKING CESSATION THERAPY
     Dosage: 0.5 MG, UNK
     Dates: start: 2014, end: 2014
  2. CHANTIX [Suspect]
     Dosage: 1 MG, TWO TIMES A DAY
     Dates: start: 2014, end: 20140508

REACTIONS (5)
  - Nasal abscess [Unknown]
  - Hordeolum [Unknown]
  - Eye discharge [Unknown]
  - Eye pain [Recovered/Resolved]
  - Pain [Recovered/Resolved]
